FAERS Safety Report 4830549-9 (Version None)
Quarter: 2005Q4

REPORT INFORMATION
  Report Type: 
  Country: None (occurrence: None)
  Receive Date: 20051115
  Receipt Date: 20051102
  Transmission Date: 20060501
  Serious: Yes (Other)
  Sender: FDA-Public Use
  Company Number: 2004021197

PATIENT
  Age: 66 Year
  Sex: Male
  Weight: 99.7913 kg

DRUGS (2)
  1. VIAGRA [Suspect]
     Indication: ERECTILE DYSFUNCTION
     Dosage: 50 MG (1 AS NECESSARY); ORAL
     Route: 048
     Dates: start: 20040301, end: 20040307
  2. LIPITOR [Concomitant]

REACTIONS (15)
  - BLINDNESS [None]
  - CATARACT NUCLEAR [None]
  - CUTIS LAXA [None]
  - GENITAL ERYTHEMA [None]
  - GENITAL LESION [None]
  - INFECTION [None]
  - LOW DENSITY LIPOPROTEIN INCREASED [None]
  - PENILE DISCHARGE [None]
  - PENILE PAIN [None]
  - PENIS DISORDER [None]
  - SKIN DISORDER [None]
  - STRESS [None]
  - VISION BLURRED [None]
  - VITREOUS DETACHMENT [None]
  - VITREOUS FLOATERS [None]
